FAERS Safety Report 25875424 (Version 2)
Quarter: 2025Q4

REPORT INFORMATION
  Report Type: Spontaneous
  Country: JP (occurrence: JP)
  Receive Date: 20251003
  Receipt Date: 20251031
  Transmission Date: 20260118
  Serious: Yes (Other)
  Sender: BRISTOL MYERS SQUIBB
  Company Number: JP-BRISTOL-MYERS SQUIBB COMPANY-BMS-2019-089093

PATIENT
  Age: 67 Year
  Sex: Female

DRUGS (6)
  1. YERVOY [Suspect]
     Active Substance: IPILIMUMAB
     Indication: Malignant melanoma
     Dosage: 169.2 MG
     Route: 041
     Dates: start: 20190816, end: 20190816
  2. YERVOY [Suspect]
     Active Substance: IPILIMUMAB
     Dosage: 169.2 MG
     Route: 041
  3. OPDIVO [Suspect]
     Active Substance: NIVOLUMAB
     Indication: Malignant melanoma
     Dosage: 240 MG
     Route: 041
     Dates: start: 20190510, end: 20190705
  4. OPDIVO [Suspect]
     Active Substance: NIVOLUMAB
     Dosage: 80 MG
     Route: 041
     Dates: start: 20190816, end: 20190816
  5. OPDIVO [Suspect]
     Active Substance: NIVOLUMAB
     Dosage: 80 MG
     Route: 041
  6. OPDIVO [Suspect]
     Active Substance: NIVOLUMAB
     Dosage: UNK
     Route: 041

REACTIONS (7)
  - Fatigue [Recovered/Resolved]
  - Leukoderma [Not Recovered/Not Resolved]
  - Malaise [Recovered/Resolved]
  - Immune-mediated cholangitis [Recovering/Resolving]
  - Jaundice cholestatic [Recovering/Resolving]
  - Renal tubular acidosis [Unknown]
  - Type 1 diabetes mellitus [Unknown]

NARRATIVE: CASE EVENT DATE: 20190827
